FAERS Safety Report 12979105 (Version 2)
Quarter: 2016Q4

REPORT INFORMATION
  Report Type: Spontaneous
  Country: FR (occurrence: FR)
  Receive Date: 20161128
  Receipt Date: 20161229
  Transmission Date: 20170207
  Serious: Yes (Life-Threatening, Hospitalization, Other)
  Sender: FDA-Public Use
  Company Number: FR-GLAXOSMITHKLINE-FR2016GSK174067

PATIENT
  Age: 34 Year
  Sex: Female

DRUGS (4)
  1. BENLYSTA [Suspect]
     Active Substance: BELIMUMAB
     Indication: SYSTEMIC LUPUS ERYTHEMATOSUS
     Dosage: 700 MG, SINGLE
     Route: 042
     Dates: start: 20161021
  2. METHOTREXATE. [Concomitant]
     Active Substance: METHOTREXATE
     Indication: SYSTEMIC LUPUS ERYTHEMATOSUS
     Dosage: 10 MG, WE
  3. CORTANCYL [Concomitant]
     Active Substance: PREDNISONE
     Indication: SYSTEMIC LUPUS ERYTHEMATOSUS
     Dosage: 10 MG, UNK
  4. PLAQUENIL [Concomitant]
     Active Substance: HYDROXYCHLOROQUINE SULFATE
     Indication: SYSTEMIC LUPUS ERYTHEMATOSUS
     Dosage: UNK

REACTIONS (11)
  - Circulatory collapse [Unknown]
  - Shock [Recovered/Resolved]
  - Pyrexia [Recovered/Resolved]
  - Bronchospasm [Unknown]
  - Hypotension [Unknown]
  - Nausea [Unknown]
  - Anaemia [Unknown]
  - Headache [Unknown]
  - Thrombocytopenia [Unknown]
  - Rash erythematous [Unknown]
  - Dizziness [Unknown]

NARRATIVE: CASE EVENT DATE: 201610
